FAERS Safety Report 12726532 (Version 1)
Quarter: 2016Q3

REPORT INFORMATION
  Report Type: Report from Study
  Country: BR (occurrence: BR)
  Receive Date: 20160908
  Receipt Date: 20160908
  Transmission Date: 20161109
  Serious: Yes (Other)
  Sender: FDA-Public Use
  Company Number: BR-BAYER-2016-170561

PATIENT
  Age: 28 Year
  Sex: Female

DRUGS (1)
  1. BETAFERON [Suspect]
     Active Substance: INTERFERON BETA-1B
     Indication: RELAPSING-REMITTING MULTIPLE SCLEROSIS
     Dosage: 9600000 IU, QOD
     Route: 058
     Dates: start: 200912, end: 2016

REACTIONS (6)
  - Sensory disturbance [None]
  - Muscular weakness [None]
  - Multiple sclerosis [None]
  - Hypoaesthesia [Recovered/Resolved with Sequelae]
  - Formication [None]
  - Product use issue [None]

NARRATIVE: CASE EVENT DATE: 200912
